FAERS Safety Report 22033919 (Version 1)
Quarter: 2023Q1

REPORT INFORMATION
  Report Type: Spontaneous
  Country: US (occurrence: US)
  Receive Date: 20230224
  Receipt Date: 20230224
  Transmission Date: 20230418
  Serious: No
  Sender: FDA-Public Use
  Company Number: US-TRIS PHARMA, INC.-23US010737

PATIENT

DRUGS (6)
  1. DEXTROMETHORPHAN HYDROBROMIDE [Suspect]
     Active Substance: DEXTROMETHORPHAN HYDROBROMIDE
     Indication: Cough
     Dosage: 60 MILLIGRAM, BID WITHIN LESS THAN 12 HOURS
     Route: 048
     Dates: start: 20230207, end: 20230207
  2. METOPROLOL [Concomitant]
     Active Substance: METOPROLOL
     Indication: Product used for unknown indication
     Dosage: UNK
  3. LISINOPRIL [Concomitant]
     Active Substance: LISINOPRIL
     Indication: Product used for unknown indication
     Dosage: UNK
  4. AMOXICILINA + CLAVUL POTASSIO [AMOXICILLIN SODIUM;CLAVULANATE POTASSIU [Concomitant]
     Indication: Product used for unknown indication
     Dosage: UNK
     Dates: start: 20230203
  5. ESTROGENS [Concomitant]
     Active Substance: ESTROGENS
     Indication: Menopause
  6. PROGESTERONE [Concomitant]
     Active Substance: PROGESTERONE
     Indication: Menopause

REACTIONS (6)
  - Lip swelling [Not Recovered/Not Resolved]
  - Lip erythema [Not Recovered/Not Resolved]
  - Hypoaesthesia oral [Not Recovered/Not Resolved]
  - Hypoaesthesia [Not Recovered/Not Resolved]
  - Swelling face [Not Recovered/Not Resolved]
  - Inappropriate schedule of product administration [Unknown]

NARRATIVE: CASE EVENT DATE: 20230207
